FAERS Safety Report 9413860 (Version 1)
Quarter: 2013Q3

REPORT INFORMATION
  Report Type: Spontaneous
  Country: US (occurrence: US)
  Receive Date: 20130723
  Receipt Date: 20130723
  Transmission Date: 20140515
  Serious: No
  Sender: FDA-Public Use
  Company Number: US-009507513-1307USA011834

PATIENT
  Sex: 0
  Weight: 65.76 kg

DRUGS (1)
  1. IMPLANON [Suspect]
     Dosage: 68 MG/1 ROD EVERY THREE YEARS
     Route: 059
     Dates: start: 20120516

REACTIONS (2)
  - Device kink [Unknown]
  - No adverse event [Unknown]
